FAERS Safety Report 7293450-X (Version None)
Quarter: 2011Q1

REPORT INFORMATION
  Report Type: 
  Country: None (occurrence: None)
  Receive Date: 20110204
  Receipt Date: 20110125
  Transmission Date: 20110831
  Serious: Yes (Other)
  Sender: FDA-Public Use
  Company Number: 026259

PATIENT
  Sex: Female

DRUGS (2)
  1. LAMICTAL [Suspect]
     Indication: CONVULSION
     Dosage: (VARIABLE DOSE ORAL)
     Route: 048
     Dates: start: 20101205
  2. LACOSAMIDE [Suspect]
     Indication: CONVULSION
     Dosage: (100 MG BID ORAL)
     Route: 048
     Dates: start: 20101101

REACTIONS (6)
  - CONVULSION [None]
  - VOMITING [None]
  - TREMOR [None]
  - MIGRAINE [None]
  - FALL [None]
  - HEADACHE [None]
